FAERS Safety Report 9257446 (Version 1)
Quarter: 2013Q2

REPORT INFORMATION
  Report Type: Spontaneous
  Country: ID (occurrence: ID)
  Receive Date: 20130426
  Receipt Date: 20130426
  Transmission Date: 20140414
  Serious: Yes (Other)
  Sender: FDA-Public Use
  Company Number: ID-JNJFOC-20130410295

PATIENT
  Age: 27 Year
  Sex: Male

DRUGS (8)
  1. INVEGA SUSTENNA [Suspect]
     Indication: SCHIZOPHRENIA
     Route: 030
     Dates: start: 20130402
  2. INVEGA SUSTENNA [Suspect]
     Indication: SCHIZOPHRENIA
     Route: 030
     Dates: start: 20130204
  3. INVEGA SUSTENNA [Suspect]
     Indication: SCHIZOPHRENIA
     Route: 030
     Dates: start: 201303
  4. HALOPERIDOL [Concomitant]
     Indication: SCHIZOPHRENIA
     Route: 048
  5. VALPROIC ACID [Concomitant]
     Indication: SCHIZOPHRENIA
     Route: 048
  6. SERTRALINE [Concomitant]
     Indication: SCHIZOPHRENIA
     Route: 048
  7. OLANZAPINE [Concomitant]
     Indication: SCHIZOPHRENIA
     Route: 048
  8. TRIHEXYPHENIDYL [Concomitant]
     Indication: SCHIZOPHRENIA
     Route: 048

REACTIONS (1)
  - Homicide [Unknown]
